FAERS Safety Report 25831707 (Version 2)
Quarter: 2025Q4

REPORT INFORMATION
  Report Type: Spontaneous
  Country: US (occurrence: US)
  Receive Date: 20250922
  Receipt Date: 20251021
  Transmission Date: 20260118
  Serious: No
  Sender: PFIZER
  Company Number: US-PFIZER INC-202500064061

PATIENT
  Age: 65 Year
  Sex: Male

DRUGS (1)
  1. BRAFTOVI [Suspect]
     Active Substance: ENCORAFENIB
     Indication: Colon cancer
     Dosage: 300 MG, 1X/DAY (TAKE 300 MG 1 (ONE) TIME EACH DAY)
     Route: 048

REACTIONS (2)
  - Malaise [Unknown]
  - Rhinorrhoea [Unknown]
